FAERS Safety Report 17824779 (Version 1)
Quarter: 2020Q2

REPORT INFORMATION
  Report Type: Spontaneous
  Country: US (occurrence: US)
  Receive Date: 20200526
  Receipt Date: 20200526
  Transmission Date: 20200714
  Serious: Yes (Other)
  Sender: FDA-Public Use
  Company Number: US-MYLANLABS-2020M1050973

PATIENT
  Age: 4 Year
  Sex: Female

DRUGS (10)
  1. METHYLPREDNISOLONE. [Suspect]
     Active Substance: METHYLPREDNISOLONE
     Indication: IMMUNOSUPPRESSANT DRUG THERAPY
     Dosage: FIVE DAILY DOSES
     Route: 042
     Dates: start: 2013
  2. MYCOPHENOLATE MOFETIL. [Suspect]
     Active Substance: MYCOPHENOLATE MOFETIL
     Indication: IMMUNOSUPPRESSANT DRUG THERAPY
     Dosage: 400 MILLIGRAM/SQ. METER, BID
     Route: 065
  3. MYCOPHENOLATE MOFETIL. [Suspect]
     Active Substance: MYCOPHENOLATE MOFETIL
     Dosage: 570 MILLIGRAM/SQ. METER, BID
     Route: 065
  4. MYCOPHENOLATE MOFETIL. [Suspect]
     Active Substance: MYCOPHENOLATE MOFETIL
     Indication: IMMUNOSUPPRESSANT DRUG THERAPY
     Dosage: 420 MILLIGRAM/SQ. METER, BID
     Route: 065
  5. PREDNISONE. [Suspect]
     Active Substance: PREDNISONE
     Indication: IMMUNOSUPPRESSANT DRUG THERAPY
     Dosage: 3 MILLIGRAM, QD
     Route: 048
  6. AZATHIOPRINE. [Suspect]
     Active Substance: AZATHIOPRINE
     Indication: IMMUNOSUPPRESSANT DRUG THERAPY
     Dosage: 1.5 MILLIGRAM/KILOGRAM, QD
     Route: 065
  7. RITUXIMAB. [Suspect]
     Active Substance: RITUXIMAB
     Indication: IMMUNOSUPPRESSANT DRUG THERAPY
     Dosage: UNK
     Route: 065
  8. ALEMTUZUMAB [Suspect]
     Active Substance: ALEMTUZUMAB
     Indication: IMMUNOSUPPRESSANT DRUG THERAPY
     Dosage: 0.5 MILLIGRAM/KILOGRAM
     Route: 065
     Dates: start: 2013
  9. TACROLIMUS. [Suspect]
     Active Substance: TACROLIMUS
     Indication: IMMUNOSUPPRESSANT DRUG THERAPY
     Dosage: 12 HOUR TROUGH LEVEL OF 8-10 NG/ML FOR THE FIRST 3 MONTHS AND 5-7 NG/ML THEREAFTER.
     Route: 065
     Dates: start: 2013
  10. TACROLIMUS. [Suspect]
     Active Substance: TACROLIMUS
     Dosage: ACHIEVE THERAPEUTIC 12 HOUR TARGET LEVELS OF 4-6 NG/ ML
     Route: 065

REACTIONS (3)
  - Diarrhoea [Recovered/Resolved]
  - Polyomavirus viraemia [Recovered/Resolved]
  - Trichodysplasia spinulosa [Recovering/Resolving]
